FAERS Safety Report 20798065 (Version 2)
Quarter: 2022Q4

REPORT INFORMATION
  Report Type: Report from Study
  Country: US (occurrence: US)
  Receive Date: 20220506
  Receipt Date: 20221025
  Transmission Date: 20230113
  Serious: Yes (Death, Other)
  Sender: FDA-Public Use
  Company Number: US-ABBVIE-22K-163-4379440-00

PATIENT
  Age: 77 Year
  Sex: Male

DRUGS (1)
  1. CREON [Suspect]
     Active Substance: PANCRELIPASE AMYLASE\PANCRELIPASE LIPASE\PANCRELIPASE PROTEASE
     Indication: Product used for unknown indication
     Dosage: FREQUENCY: UNKNOWN?FORM STRENGTH: 24000 INTERNATIONAL UNIT
     Route: 048

REACTIONS (3)
  - Death [Fatal]
  - Pancreatic carcinoma [Unknown]
  - Speech disorder [Unknown]

NARRATIVE: CASE EVENT DATE: 20220506
